FAERS Safety Report 11594891 (Version 2)
Quarter: 2015Q4

REPORT INFORMATION
  Report Type: Spontaneous
  Country: BR (occurrence: BR)
  Receive Date: 20151005
  Receipt Date: 20151015
  Transmission Date: 20160304
  Serious: Yes (Hospitalization)
  Sender: FDA-Public Use
  Company Number: BR-ASTRAZENECA-2015SE95017

PATIENT
  Age: 779 Month
  Sex: Female

DRUGS (4)
  1. SELOZOK [Suspect]
     Active Substance: METOPROLOL SUCCINATE
     Indication: HYPERTENSION
     Route: 048
     Dates: start: 2011, end: 201507
  2. SELOZOK [Suspect]
     Active Substance: METOPROLOL SUCCINATE
     Indication: HYPERTENSION
     Route: 048
  3. ALENIA [Suspect]
     Active Substance: BUDESONIDE\FORMOTEROL FUMARATE
     Indication: PULMONARY FIBROSIS
     Dosage: 400/12 UG TWO TIMES A DAY
     Route: 055
     Dates: start: 201409
  4. LOSARTAN. [Suspect]
     Active Substance: LOSARTAN
     Indication: HYPERTENSION
     Route: 048
     Dates: start: 201507, end: 201507

REACTIONS (7)
  - Hypoaesthesia [Unknown]
  - Pulmonary fibrosis [Recovered/Resolved]
  - Headache [Unknown]
  - Cough [Not Recovered/Not Resolved]
  - Malaise [Unknown]
  - Intentional product misuse [Recovered/Resolved]
  - Hypertension [Recovered/Resolved]

NARRATIVE: CASE EVENT DATE: 201409
